FAERS Safety Report 4529424-9 (Version None)
Quarter: 2004Q4

REPORT INFORMATION
  Report Type: 
  Country: None (occurrence: None)
  Receive Date: 20041216
  Receipt Date: 20040225
  Transmission Date: 20050328
  Serious: Yes (Hospitalization, Other)
  Sender: FDA-Public Use
  Company Number: PHBS2004SE02640

PATIENT
  Age: 55 Year
  Sex: Female

DRUGS (4)
  1. LAMISIL [Suspect]
     Indication: NAIL TINEA
     Dosage: 250 MG/D
     Route: 048
     Dates: start: 20030915, end: 20031013
  2. APOZEPAM [Concomitant]
  3. PRONAXEN [Concomitant]
  4. ZOPICLONE [Concomitant]

REACTIONS (8)
  - ACUTE GENERALISED EXANTHEMATOUS PUSTULOSIS [None]
  - ERYTHEMA [None]
  - FATIGUE [None]
  - INFECTION [None]
  - RASH GENERALISED [None]
  - RASH PUSTULAR [None]
  - RASH SCALY [None]
  - SKIN DISORDER [None]
